FAERS Safety Report 25498797 (Version 2)
Quarter: 2025Q3

REPORT INFORMATION
  Report Type: Spontaneous
  Country: CN (occurrence: CN)
  Receive Date: 20250701
  Receipt Date: 20250710
  Transmission Date: 20251021
  Serious: Yes (Hospitalization, Other)
  Sender: DAIICHI
  Company Number: CN-DSJP-DS-2025-149991-CN

PATIENT
  Age: 48 Year
  Sex: Female
  Weight: 63 kg

DRUGS (2)
  1. ENHERTU [Suspect]
     Active Substance: FAM-TRASTUZUMAB DERUXTECAN-NXKI
     Indication: Breast cancer
     Dosage: 280 MG, ONCE EVERY 3 WK
     Route: 041
     Dates: start: 20250509, end: 20250509
  2. DEXTROSE [Concomitant]
     Active Substance: DEXTROSE MONOHYDRATE
     Indication: Breast cancer
     Dosage: 100 ML, ONCE EVERY 3 WK
     Route: 041
     Dates: start: 20250509, end: 20250509

REACTIONS (1)
  - Myelosuppression [Recovering/Resolving]

NARRATIVE: CASE EVENT DATE: 20250520
